FAERS Safety Report 22652030 (Version 1)
Quarter: 2023Q2

REPORT INFORMATION
  Report Type: Spontaneous
  Country: US (occurrence: US)
  Receive Date: 20230628
  Receipt Date: 20230628
  Transmission Date: 20230722
  Serious: No
  Sender: FDA-Public Use
  Company Number: US-Emergent Biosolutions-23000211

PATIENT

DRUGS (1)
  1. CNJ-016 [Suspect]
     Active Substance: HUMAN VACCINIA VIRUS IMMUNE GLOBULIN
     Indication: Monkeypox
     Dosage: UNK
     Route: 065
     Dates: start: 2022, end: 2022

REACTIONS (1)
  - Off label use [Unknown]

NARRATIVE: CASE EVENT DATE: 20220101
